FAERS Safety Report 5502085-8 (Version None)
Quarter: 2007Q4

REPORT INFORMATION
  Report Type: 
  Country: None (occurrence: None)
  Receive Date: 20071030
  Receipt Date: 20070810
  Transmission Date: 20080405
  Serious: Yes (Hospitalization)
  Sender: FDA-Public Use
  Company Number: AU-SANOFI-SYNTHELABO-A01200701968

PATIENT
  Age: 47 Year
  Sex: Female
  Weight: 85 kg

DRUGS (5)
  1. SERTRALINE [Concomitant]
     Indication: DRUG USE FOR UNKNOWN INDICATION
     Route: 048
  2. DITROPAN [Concomitant]
     Dosage: 10 MG
     Route: 048
     Dates: start: 20060101
  3. KARVEA [Concomitant]
     Dosage: 300 MG
     Route: 048
     Dates: start: 20040101
  4. STILNOX [Suspect]
     Dosage: 1-2 /NOCTE
     Route: 048
     Dates: start: 20030101, end: 20070301
  5. EFFEXOR XR [Concomitant]
     Dosage: 150 MG
     Route: 048
     Dates: start: 20020101

REACTIONS (5)
  - AMNESIA [None]
  - CONTUSION [None]
  - EATING DISORDER [None]
  - SOMNAMBULISM [None]
  - WEIGHT INCREASED [None]
